FAERS Safety Report 16481442 (Version 1)
Quarter: 2019Q2

REPORT INFORMATION
  Report Type: Spontaneous
  Country: DE (occurrence: DE)
  Receive Date: 20190627
  Receipt Date: 20190627
  Transmission Date: 20190711
  Serious: Yes (Other)
  Sender: FDA-Public Use
  Company Number: DE-AUROBINDO-AUR-APL-2019-036222

PATIENT

DRUGS (3)
  1. FOLIC ACID. [Concomitant]
     Active Substance: FOLIC ACID
     Indication: PROPHYLAXIS OF NEURAL TUBE DEFECT
     Dosage: 5 MILLIGRAM, DAILY
     Route: 048
     Dates: start: 20180307, end: 20180423
  2. LAMOTRIGINE. [Suspect]
     Active Substance: LAMOTRIGINE
     Indication: EPILEPSY
     Dosage: UNK, 300 [MG / D (UP TO 100)]
     Route: 048
     Dates: start: 20180307
  3. L-THYROXIN [Concomitant]
     Active Substance: LEVOTHYROXINE SODIUM
     Indication: HYPOTHYROIDISM
     Dosage: 10000 MICROGRAM, DAILY (100 [?G/D])
     Route: 048
     Dates: start: 20180307, end: 20180805

REACTIONS (4)
  - Exposure during pregnancy [Unknown]
  - Placental disorder [Recovered/Resolved]
  - Foetal growth restriction [Recovered/Resolved]
  - Congenital uterine anomaly [Unknown]
